FAERS Safety Report 13551227 (Version 1)
Quarter: 2017Q2

REPORT INFORMATION
  Report Type: Spontaneous
  Country: FR (occurrence: FR)
  Receive Date: 20170516
  Receipt Date: 20170516
  Transmission Date: 20170830
  Serious: Yes (Other)
  Sender: FDA-Public Use
  Company Number: FR-GILEAD-2017-0272287

PATIENT
  Age: 54 Year
  Sex: Male

DRUGS (4)
  1. PAROXETINE. [Concomitant]
     Active Substance: PAROXETINE
  2. VALIUM [Concomitant]
     Active Substance: DIAZEPAM
  3. RISPERDAL [Interacting]
     Active Substance: RISPERIDONE
     Indication: ANXIETY
     Dosage: 4 MG
     Route: 048
     Dates: start: 20170327, end: 20170414
  4. STRIBILD [Suspect]
     Active Substance: COBICISTAT\ELVITEGRAVIR\EMTRICITABINE\TENOFOVIR DISOPROXIL FUMARATE
     Indication: HIV INFECTION
     Dosage: 1 DF, UNK
     Route: 048
     Dates: end: 20170407

REACTIONS (2)
  - Drug interaction [Recovering/Resolving]
  - Serotonin syndrome [Recovering/Resolving]

NARRATIVE: CASE EVENT DATE: 20170407
